FAERS Safety Report 23246064 (Version 1)
Quarter: 2023Q4

REPORT INFORMATION
  Report Type: Report from Study
  Country: US (occurrence: None)
  Receive Date: 20231130
  Receipt Date: 20231130
  Transmission Date: 20240109
  Serious: Yes (Hospitalization)
  Sender: FDA-Public Use
  Company Number: US-ROCHE-494309

PATIENT
  Age: 64 Year
  Sex: Male
  Weight: 86 kg

DRUGS (5)
  1. BEVACIZUMAB [Suspect]
     Active Substance: BEVACIZUMAB
     Indication: Adenocarcinoma pancreas
     Dosage: DOSING FREQUENCY: DAYS 1 + 15
     Route: 042
     Dates: start: 20060815
  2. ERLOTINIB [Suspect]
     Active Substance: ERLOTINIB
     Indication: Adenocarcinoma pancreas
     Dosage: DOSING FREQUENCY: QD, DAYS 1-5, 8-12 + 15-26
     Route: 048
     Dates: start: 20060815
  3. GEMCITABINE HYDROCHLORIDE [Suspect]
     Active Substance: GEMCITABINE HYDROCHLORIDE
     Indication: Adenocarcinoma pancreas
     Dosage: DOSING FREQUENCY: DAYS 1, 8 + 15
     Route: 042
     Dates: start: 20060815
  4. METRONIDAZOLE [Concomitant]
     Active Substance: METRONIDAZOLE
     Route: 065
  5. VANCOMYCIN [Concomitant]
     Active Substance: VANCOMYCIN
     Route: 065

REACTIONS (1)
  - Confusional state [Recovered/Resolved]

NARRATIVE: CASE EVENT DATE: 20070212
